FAERS Safety Report 11436083 (Version 2)
Quarter: 2015Q3

REPORT INFORMATION
  Report Type: Spontaneous
  Country: US (occurrence: US)
  Receive Date: 20150821
  Receipt Date: 20150916
  Transmission Date: 20151125
  Serious: No
  Sender: FDA-Public Use
  Company Number: US-ELI_LILLY_AND_COMPANY-US201403001796

PATIENT
  Sex: Female

DRUGS (11)
  1. HUMULIN N [Suspect]
     Active Substance: INSULIN HUMAN
     Dosage: 30 U, BID
     Route: 058
  2. CODEINE [Concomitant]
     Active Substance: CODEINE
     Dosage: UNK, PRN
  3. MORPHINE [Concomitant]
     Active Substance: MORPHINE
  4. PRILOSEC [Concomitant]
     Active Substance: OMEPRAZOLE MAGNESIUM
  5. LORAZEPAM. [Concomitant]
     Active Substance: LORAZEPAM
  6. HUMULIN N [Suspect]
     Active Substance: INSULIN HUMAN
     Indication: TYPE 2 DIABETES MELLITUS
     Dosage: 30 U, BID
     Route: 058
  7. HUMALOG [Suspect]
     Active Substance: INSULIN LISPRO
     Indication: TYPE 2 DIABETES MELLITUS
     Dosage: UNK, UNKNOWN
     Route: 065
  8. HYDROCHLOROTHIAZIDE. [Concomitant]
     Active Substance: HYDROCHLOROTHIAZIDE
  9. FLEXERIL [Concomitant]
     Active Substance: CYCLOBENZAPRINE HYDROCHLORIDE
  10. METOPROLOL [Concomitant]
     Active Substance: METOPROLOL
  11. ASPIRIN. [Concomitant]
     Active Substance: ASPIRIN

REACTIONS (4)
  - Blood glucose increased [Recovering/Resolving]
  - Malaise [Unknown]
  - Injection site bruising [Unknown]
  - Injection site pain [Unknown]
